FAERS Safety Report 10039900 (Version 2)
Quarter: 2014Q2

REPORT INFORMATION
  Report Type: Spontaneous
  Country: US (occurrence: US)
  Receive Date: 20140326
  Receipt Date: 20140513
  Transmission Date: 20141212
  Serious: Yes (Other)
  Sender: FDA-Public Use
  Company Number: US-PFIZER INC-2014083468

PATIENT
  Age: 58 Year
  Sex: Female
  Weight: 61.2 kg

DRUGS (3)
  1. PREMPRO [Suspect]
     Indication: MENOPAUSAL SYMPTOMS
     Dosage: 0.30 MG, 1X/DAY
  2. PREMPRO [Suspect]
     Dosage: 0.45 MG, 1X/DAY
     Dates: start: 201307, end: 201403
  3. DIOVAN HCT [Concomitant]
     Indication: HYPERTENSION
     Dosage: UNK

REACTIONS (2)
  - Arthropathy [Unknown]
  - Drug ineffective [Unknown]
